FAERS Safety Report 11910061 (Version 4)
Quarter: 2016Q2

REPORT INFORMATION
  Report Type: Report from Study
  Country: US (occurrence: US)
  Receive Date: 20160112
  Receipt Date: 20160405
  Transmission Date: 20160815
  Serious: Yes (Life-Threatening, Hospitalization)
  Sender: FDA-Public Use
  Company Number: US-NOVOPROD-475011

PATIENT
  Age: 70 Year
  Sex: Female
  Weight: 97.52 kg

DRUGS (12)
  1. BLINDED NO DRUG GIVEN [Suspect]
     Active Substance: UNSPECIFIED INGREDIENT
     Dosage: AT DECREASED DOSE
     Route: 058
     Dates: start: 20160202
  2. NOVORAPID [Suspect]
     Active Substance: INSULIN ASPART
     Indication: TYPE 2 DIABETES MELLITUS
     Dosage: 74.0,,QD
     Route: 058
     Dates: start: 20140311, end: 20151204
  3. NOVORAPID [Suspect]
     Active Substance: INSULIN ASPART
     Indication: TYPE 2 DIABETES MELLITUS
     Dosage: 15 U, QD
     Route: 058
     Dates: start: 20140311, end: 20151204
  4. NOVORAPID [Suspect]
     Active Substance: INSULIN ASPART
     Dosage: DOSE INCREASED
     Route: 058
  5. BLINDED IDEG 100U VIAL [Suspect]
     Active Substance: INSULIN DEGLUDEC
     Indication: TYPE 2 DIABETES MELLITUS
     Dosage: 74.0,,QD
     Route: 058
     Dates: start: 20140311, end: 20151204
  6. BLINDED UNKNOWN [Suspect]
     Active Substance: UNSPECIFIED INGREDIENT
     Dosage: AT DECREASED DOSE
     Route: 058
     Dates: start: 20160202
  7. BLINDED UNKNOWN [Suspect]
     Active Substance: UNSPECIFIED INGREDIENT
     Indication: TYPE 2 DIABETES MELLITUS
     Dosage: 74.0,,QD
     Route: 058
     Dates: start: 20140311, end: 20151204
  8. NOVORAPID [Suspect]
     Active Substance: INSULIN ASPART
     Dosage: AT DECREASED DOSE
     Route: 058
     Dates: start: 20160202
  9. LANTUS [Suspect]
     Active Substance: INSULIN GLARGINE
     Indication: TYPE 2 DIABETES MELLITUS
     Dosage: 74.0,,QD
     Route: 058
     Dates: start: 20140311, end: 20151204
  10. BLINDED NO DRUG GIVEN [Suspect]
     Active Substance: UNSPECIFIED INGREDIENT
     Indication: TYPE 2 DIABETES MELLITUS
     Dosage: 74.0,,QD
     Route: 058
     Dates: start: 20140311, end: 20151204
  11. BLINDED IDEG 100U VIAL [Suspect]
     Active Substance: INSULIN DEGLUDEC
     Dosage: AT DECREASED DOSE
     Route: 058
     Dates: start: 20160202
  12. LANTUS [Suspect]
     Active Substance: INSULIN GLARGINE
     Dosage: AT DECREASED DOSE
     Route: 058
     Dates: start: 20160202

REACTIONS (1)
  - Myocardial infarction [Recovered/Resolved]

NARRATIVE: CASE EVENT DATE: 20151201
